FAERS Safety Report 5812667-1 (Version None)
Quarter: 2008Q3

REPORT INFORMATION
  Report Type: 
  Country: None (occurrence: None)
  Receive Date: 20080711
  Receipt Date: 20070815
  Transmission Date: 20090109
  Serious: Yes (Other)
  Sender: FDA-Public Use
  Company Number: WAES 0708USA05860

PATIENT
  Age: 27 Year
  Sex: Female

DRUGS (1)
  1. CRIXIVAN [Suspect]
     Indication: HIV INFECTION

REACTIONS (3)
  - DRUG EXPOSURE DURING PREGNANCY [None]
  - MATERNAL USE OF ILLICIT DRUGS [None]
  - PREMATURE LABOUR [None]
